FAERS Safety Report 17939217 (Version 2)
Quarter: 2020Q2

REPORT INFORMATION
  Report Type: Report from Study
  Country: None (occurrence: CA)
  Receive Date: 20200624
  Receipt Date: 20200630
  Transmission Date: 20200714
  Serious: Yes (Hospitalization)
  Sender: FDA-Public Use
  Company Number: CA-ABBVIE-20K-028-3457458-00

PATIENT
  Age: 72 Year
  Sex: Male

DRUGS (1)
  1. IMBRUVICA [Suspect]
     Active Substance: IBRUTINIB
     Indication: WALDENSTROM^S MACROGLOBULINAEMIA
     Route: 048
     Dates: start: 20200327

REACTIONS (5)
  - Joint injury [Unknown]
  - Head injury [Unknown]
  - Fall [Not Recovered/Not Resolved]
  - Muscle spasms [Unknown]
  - Joint swelling [Unknown]

NARRATIVE: CASE EVENT DATE: 20200618
